FAERS Safety Report 9067657 (Version 1)
Quarter: 2013Q1

REPORT INFORMATION
  Report Type: Spontaneous
  Country: BR (occurrence: BR)
  Receive Date: 20130128
  Receipt Date: 20130128
  Transmission Date: 20140127
  Serious: Yes (Death, Hospitalization, Other)
  Sender: FDA-Public Use
  Company Number: BR-PFIZER INC-2013031838

PATIENT
  Age: 89 Year
  Sex: Male

DRUGS (3)
  1. LIPITOR [Suspect]
     Indication: BLOOD CHOLESTEROL
     Dosage: 20 MG, UNK
     Route: 048
  2. DETRUSITOL LA [Suspect]
     Indication: PROSTATE CANCER
     Dosage: 4 MG, UNK
     Route: 048
     Dates: start: 2006
  3. DETRUSITOL LA [Suspect]
     Indication: URINARY INCONTINENCE

REACTIONS (9)
  - Multi-organ disorder [Fatal]
  - Prostate cancer [Fatal]
  - Hypoxia [Fatal]
  - Aspiration bronchial [Fatal]
  - Vomiting [Fatal]
  - Gastrointestinal carcinoma [Unknown]
  - Tuberculosis [Unknown]
  - Thrombosis [Unknown]
  - Retinal degeneration [Unknown]
